FAERS Safety Report 12731214 (Version 1)
Quarter: 2016Q3

REPORT INFORMATION
  Report Type: Spontaneous
  Country: US (occurrence: US)
  Receive Date: 20160912
  Receipt Date: 20160912
  Transmission Date: 20161109
  Serious: Yes (Other)
  Sender: FDA-Public Use
  Company Number: US-ABBVIE-16K-163-1718801-00

PATIENT
  Sex: Female

DRUGS (3)
  1. OLUX-E [Concomitant]
     Active Substance: CLOBETASOL PROPIONATE
     Indication: PRODUCT USED FOR UNKNOWN INDICATION
  2. HUMIRA [Suspect]
     Active Substance: ADALIMUMAB
     Indication: PRODUCT USED FOR UNKNOWN INDICATION
     Route: 058
  3. PREDNISONE. [Suspect]
     Active Substance: PREDNISONE
     Indication: PRODUCT USED FOR UNKNOWN INDICATION
     Route: 065

REACTIONS (8)
  - Hyperemesis gravidarum [Unknown]
  - Seizure [Unknown]
  - Stress [Unknown]
  - Weight increased [Unknown]
  - Psoriasis [Unknown]
  - Exposure during pregnancy [Unknown]
  - Injection site hypersensitivity [Unknown]
  - Urticaria [Unknown]
